FAERS Safety Report 7631202-9 (Version None)
Quarter: 2011Q3

REPORT INFORMATION
  Report Type: 
  Country: None (occurrence: None)
  Receive Date: 20110725
  Receipt Date: 20110719
  Transmission Date: 20111222
  Serious: No
  Sender: FDA-Public Use
  Company Number: US-JNJFOC-20110708174

PATIENT
  Sex: Female

DRUGS (2)
  1. INVEGA SUSTENNA [Suspect]
     Indication: MAJOR DEPRESSION
     Route: 030
     Dates: start: 20110429
  2. INVEGA SUSTENNA [Suspect]
     Route: 030

REACTIONS (1)
  - GALACTORRHOEA [None]
